FAERS Safety Report 20901372 (Version 1)
Quarter: 2022Q2

REPORT INFORMATION
  Report Type: Spontaneous
  Country: US (occurrence: US)
  Receive Date: 20220601
  Receipt Date: 20220601
  Transmission Date: 20220721
  Serious: No
  Sender: FDA-Public Use
  Company Number: US-TARO PHARMACEUTICALS USA INC.-2022TAR00517

PATIENT

DRUGS (2)
  1. IVERMECTIN [Suspect]
     Active Substance: IVERMECTIN
     Indication: Lice infestation
     Dosage: SCALP/HAIR, BID
     Route: 061
     Dates: start: 20220325
  2. IVERMECTIN [Suspect]
     Active Substance: IVERMECTIN
     Dosage: SCALP/HAIR, BID
     Route: 061
     Dates: start: 20220330

REACTIONS (3)
  - Incorrect product administration duration [Unknown]
  - Drug ineffective [Unknown]
  - Overdose [Unknown]

NARRATIVE: CASE EVENT DATE: 20220330
